FAERS Safety Report 7818892-2 (Version None)
Quarter: 2011Q4

REPORT INFORMATION
  Report Type: 
  Country: None (occurrence: None)
  Receive Date: 20111017
  Receipt Date: 20111017
  Transmission Date: 20120403
  Serious: Yes (Hospitalization)
  Sender: FDA-Public Use
  Company Number: None

PATIENT
  Sex: Female
  Weight: 70 kg

DRUGS (4)
  1. IFOSFAMIDE [Suspect]
     Dosage: 6228 MG
  2. NEULASTA [Suspect]
     Dosage: 6 MG
  3. TAXOL [Suspect]
     Dosage: 234 MG
  4. AMLODIPINE [Concomitant]

REACTIONS (6)
  - FEBRILE NEUTROPENIA [None]
  - HAEMOGLOBIN DECREASED [None]
  - DIARRHOEA [None]
  - FATIGUE [None]
  - WHITE BLOOD CELL COUNT DECREASED [None]
  - PLATELET COUNT DECREASED [None]
